FAERS Safety Report 9255865 (Version 1)
Quarter: 2013Q2

REPORT INFORMATION
  Report Type: Spontaneous
  Country: US (occurrence: US)
  Receive Date: 20130425
  Receipt Date: 20130425
  Transmission Date: 20140414
  Serious: No
  Sender: FDA-Public Use
  Company Number: US-B.I. PHARMACEUTICALS,INC./RIDGEFIELD-2013-BI-10186BP

PATIENT
  Age: 63 Year
  Sex: Female
  Weight: 110 kg

DRUGS (12)
  1. COMBIVENT [Suspect]
     Indication: CHRONIC OBSTRUCTIVE PULMONARY DISEASE
     Route: 055
     Dates: start: 20130409
  2. SPIRIVA [Suspect]
     Indication: CHRONIC OBSTRUCTIVE PULMONARY DISEASE
     Dosage: 18 MCG
     Route: 055
     Dates: start: 201302
  3. AMIODARONE [Concomitant]
     Indication: CARDIAC DISORDER
     Dosage: 100 MG
     Route: 048
  4. WARFARIN [Concomitant]
     Indication: HEART RATE IRREGULAR
     Dosage: 2.5 MG
     Route: 048
  5. FUROSEMIDE [Concomitant]
     Dosage: 40 MG
     Route: 048
  6. METOPROLOL [Concomitant]
     Dosage: 50 MG
     Route: 048
  7. SIMVASTATIN [Concomitant]
     Indication: BLOOD CHOLESTEROL INCREASED
     Dosage: 20 MG
     Route: 048
  8. LISINOPRIL [Concomitant]
     Dosage: 5 MG
     Route: 048
  9. POTASSIUM [Concomitant]
     Dosage: 20 MEQ
     Route: 048
  10. FENOFIBRATE [Concomitant]
     Dosage: 145 MG
     Route: 048
  11. NOVOLOG 70/30 [Concomitant]
     Indication: DIABETES MELLITUS
     Dosage: 30 U
     Route: 058
  12. NOVOLOG 70/30 [Concomitant]
     Dosage: 35 U
     Route: 058

REACTIONS (3)
  - Muscle spasms [Recovered/Resolved]
  - Muscle spasms [Recovered/Resolved]
  - Pain in extremity [Recovered/Resolved]
